FAERS Safety Report 6983182-7 (Version None)
Quarter: 2010Q3

REPORT INFORMATION
  Report Type: 
  Country: None (occurrence: None)
  Receive Date: 20100914
  Receipt Date: 20100701
  Transmission Date: 20110219
  Serious: No
  Sender: FDA-Public Use
  Company Number: US-PFIZER INC-2010083235

PATIENT
  Sex: Female
  Weight: 61 kg

DRUGS (4)
  1. LYRICA [Suspect]
     Indication: SCIATICA
     Dosage: 50 MG, 1X/DAY
     Route: 048
     Dates: start: 20081101
  2. LYRICA [Suspect]
     Dosage: 400 MG, 1X/DAY
  3. GLUCOSAMINE [Concomitant]
     Dosage: UNK
  4. CHONDROITIN [Concomitant]
     Dosage: UNK

REACTIONS (1)
  - ALOPECIA [None]
